FAERS Safety Report 11603270 (Version 1)
Quarter: 2015Q4

REPORT INFORMATION
  Report Type: Report from Study
  Country: FR (occurrence: FR)
  Receive Date: 20151006
  Receipt Date: 20151006
  Transmission Date: 20160304
  Serious: Yes (Other)
  Sender: FDA-Public Use
  Company Number: FR-BRISTOL-MYERS SQUIBB COMPANY-BMS-2015-065439

PATIENT
  Age: 58 Year
  Sex: Female
  Weight: 64 kg

DRUGS (5)
  1. NIVOLUMAB [Suspect]
     Active Substance: NIVOLUMAB
     Dosage: 190 UNK, UNK
     Route: 065
     Dates: start: 20150303
  2. NIVOLUMAB [Suspect]
     Active Substance: NIVOLUMAB
     Dosage: 210 MG, UNK
     Route: 065
     Dates: start: 20150421
  3. NIVOLUMAB [Suspect]
     Active Substance: NIVOLUMAB
     Dosage: 200 MG, UNK
     Route: 065
     Dates: start: 20150407
  4. NIVOLUMAB [Suspect]
     Active Substance: NIVOLUMAB
     Indication: NON-SMALL CELL LUNG CANCER
     Dosage: 190 MG, UNK
     Route: 065
     Dates: start: 20150217
  5. NIVOLUMAB [Suspect]
     Active Substance: NIVOLUMAB
     Dosage: 170 UNK, UNK
     Route: 065
     Dates: start: 20150601

REACTIONS (3)
  - Platelet disorder [Unknown]
  - Vena cava thrombosis [Unknown]
  - Haemoglobin decreased [Recovered/Resolved]

NARRATIVE: CASE EVENT DATE: 20150302
